FAERS Safety Report 25930829 (Version 2)
Quarter: 2025Q4

REPORT INFORMATION
  Report Type: Spontaneous
  Country: EU (occurrence: EU)
  Receive Date: 20251016
  Receipt Date: 20251113
  Transmission Date: 20260117
  Serious: Yes (Other)
  Sender: SANOFI AVENTIS
  Company Number: EU-SA-2025SA306088

PATIENT
  Age: 13 Year
  Sex: Male

DRUGS (6)
  1. DUPILUMAB [Suspect]
     Active Substance: DUPILUMAB
     Indication: Dermatitis atopic
     Dosage: UNK
     Dates: start: 202212
  2. BILASTINE [Concomitant]
     Active Substance: BILASTINE
     Indication: Seasonal allergy
     Dosage: UNK UNK, QD
  3. BILASTINE [Concomitant]
     Active Substance: BILASTINE
     Indication: Allergy to plants
  4. CORTICOSTEROID NOS [Concomitant]
     Active Substance: CORTICOSTEROID NOS
     Dosage: UNK, INTRANASAL
     Route: 045
  5. CYCLOSPORINE [Concomitant]
     Active Substance: CYCLOSPORINE
     Indication: Drug hypersensitivity
     Dosage: 50 MG, QD
  6. CYCLOSPORINE [Concomitant]
     Active Substance: CYCLOSPORINE
     Dosage: 100 MG, QD

REACTIONS (10)
  - Ocular surface disease [Recovered/Resolved]
  - Conjunctival irritation [Recovered/Resolved]
  - Conjunctival hyperaemia [Recovered/Resolved]
  - Eyelid thickening [Recovered/Resolved]
  - Pruritus [Recovered/Resolved]
  - Dry eye [Recovered/Resolved]
  - Skin exfoliation [Recovered/Resolved]
  - Erythema [Recovered/Resolved]
  - Eyelid irritation [Recovered/Resolved]
  - Eyelids pruritus [Recovered/Resolved]

NARRATIVE: CASE EVENT DATE: 20240101
